FAERS Safety Report 18498198 (Version 1)
Quarter: 2020Q4

REPORT INFORMATION
  Report Type: Report from Study
  Country: US (occurrence: US)
  Receive Date: 20201112
  Receipt Date: 20201112
  Transmission Date: 20210114
  Serious: Yes (Hospitalization)
  Sender: FDA-Public Use
  Company Number: US-TEVA-2020-US-1846315

PATIENT
  Age: 17 Year
  Sex: Female

DRUGS (1)
  1. ISONIAZID. [Suspect]
     Active Substance: ISONIAZID
     Indication: LATENT TUBERCULOSIS
     Dosage: 300 MILLIGRAM DAILY;
     Route: 065

REACTIONS (2)
  - Acute hepatic failure [Recovered/Resolved]
  - Hepatic necrosis [Recovered/Resolved]
